FAERS Safety Report 7956957-5 (Version None)
Quarter: 2011Q4

REPORT INFORMATION
  Report Type: 
  Country: None (occurrence: None)
  Receive Date: 20111205
  Receipt Date: 20111124
  Transmission Date: 20120403
  Serious: Yes (Other)
  Sender: FDA-Public Use
  Company Number: FR-ROCHE-1006178

PATIENT
  Sex: Male
  Weight: 85 kg

DRUGS (5)
  1. LUCENTIS [Suspect]
     Indication: AGE-RELATED MACULAR DEGENERATION
     Route: 050
  2. LANSOPRAZOLE [Concomitant]
  3. ACETAMINOPHEN [Concomitant]
  4. COZAAR [Concomitant]
  5. XANAX [Concomitant]

REACTIONS (8)
  - GAMMA-GLUTAMYLTRANSFERASE INCREASED [None]
  - BLOOD TRIGLYCERIDES INCREASED [None]
  - RED BLOOD CELL COUNT DECREASED [None]
  - PRURITUS GENERALISED [None]
  - DYSPEPSIA [None]
  - WHITE BLOOD CELL COUNT DECREASED [None]
  - ASTHENIA [None]
  - BLOOD CHOLESTEROL INCREASED [None]
